FAERS Safety Report 13216807 (Version 1)
Quarter: 2017Q1

REPORT INFORMATION
  Report Type: Other
  Country: US (occurrence: US)
  Receive Date: 20170210
  Receipt Date: 20170210
  Transmission Date: 20170428
  Serious: No
  Sender: FDA-Public Use
  Company Number: US-ACORDA-ACO_124300_2016

PATIENT
  Age: 54 Year
  Sex: Female

DRUGS (2)
  1. AMPYRA [Suspect]
     Active Substance: DALFAMPRIDINE
     Dosage: 10 MG, BID
     Route: 065
  2. AMPYRA [Suspect]
     Active Substance: DALFAMPRIDINE
     Indication: GAIT DISTURBANCE
     Dosage: 10 MG, QD
     Route: 065
     Dates: start: 20150601

REACTIONS (10)
  - Fatigue [Unknown]
  - Multiple sclerosis [Recovered/Resolved]
  - Pruritus [Recovered/Resolved]
  - Walking aid user [Unknown]
  - Inappropriate schedule of drug administration [Recovered/Resolved]
  - Gait disturbance [Not Recovered/Not Resolved]
  - Balance disorder [Unknown]
  - Back pain [Recovered/Resolved]
  - Pain [Recovered/Resolved]
  - Clumsiness [Unknown]

NARRATIVE: CASE EVENT DATE: 201311
